FAERS Safety Report 21482729 (Version 1)
Quarter: 2022Q4

REPORT INFORMATION
  Report Type: Spontaneous
  Country: CA (occurrence: CA)
  Receive Date: 20221020
  Receipt Date: 20221020
  Transmission Date: 20230113
  Serious: Yes (Death, Hospitalization, Other)
  Sender: FDA-Public Use
  Company Number: CA-TEVA-2022-CA-2817182

PATIENT
  Age: 41 Year
  Sex: Male

DRUGS (8)
  1. FENTANYL [Suspect]
     Active Substance: FENTANYL
     Indication: Product used for unknown indication
     Route: 065
  2. ETIZOLAM [Suspect]
     Active Substance: ETIZOLAM
     Indication: Product used for unknown indication
     Route: 065
  3. SUBLOCADE [Suspect]
     Active Substance: BUPRENORPHINE
     Indication: Drug use disorder
     Dosage: THERAPY DURATION : -90.0 UNKNOWN
     Route: 058
  4. SUBLOCADE [Suspect]
     Active Substance: BUPRENORPHINE
     Route: 058
  5. DOXEPIN [Concomitant]
     Active Substance: DOXEPIN
     Indication: Depression
     Route: 065
  6. LYRICA [Concomitant]
     Active Substance: PREGABALIN
     Indication: Fibromyalgia
     Route: 065
  7. OLANZAPINE [Concomitant]
     Active Substance: OLANZAPINE
     Indication: Schizophrenia
     Route: 065
  8. OLANZAPINE [Concomitant]
     Active Substance: OLANZAPINE
     Indication: Bipolar disorder

REACTIONS (8)
  - Drug dependence [Fatal]
  - Drug withdrawal syndrome [Fatal]
  - Infection [Fatal]
  - Rhabdomyolysis [Fatal]
  - Syncope [Fatal]
  - Toxicity to various agents [Fatal]
  - Fall [Fatal]
  - Overdose [Fatal]
